FAERS Safety Report 17942864 (Version 1)
Quarter: 2020Q2

REPORT INFORMATION
  Report Type: Spontaneous
  Country: IT (occurrence: IT)
  Receive Date: 20200625
  Receipt Date: 20200625
  Transmission Date: 20200714
  Serious: Yes (Other)
  Sender: FDA-Public Use
  Company Number: NVSC2020IT155780

PATIENT
  Age: 80 Year
  Sex: Male

DRUGS (5)
  1. TACROLIMUS. [Suspect]
     Active Substance: TACROLIMUS
     Indication: RENAL TRANSPLANT
  2. IMIQUIMOD. [Suspect]
     Active Substance: IMIQUIMOD
     Indication: ACTINIC KERATOSIS
     Dosage: 250 MILLIGRAM DAILY; HE APPLIED IMIQUIMOD ON THE AFFECTED AREA (SCALP), EVERY DAY FOR 14 DAYS (FIRST
     Route: 061
  3. SALINE [Concomitant]
     Active Substance: SODIUM CHLORIDE
     Indication: WOUND TREATMENT
     Dosage: UNK, BID
     Route: 061
  4. SALINE [Concomitant]
     Active Substance: SODIUM CHLORIDE
     Dosage: HE APPLIED WET DRESS IN THE TREATED SITE TWICE DAILY
     Route: 061
  5. TACROLIMUS. [Suspect]
     Active Substance: TACROLIMUS
     Indication: IMMUNOSUPPRESSANT DRUG THERAPY
     Dosage: UNK
     Route: 065

REACTIONS (3)
  - Erythema [Recovered/Resolved]
  - Skin reaction [Recovered/Resolved]
  - Actinic keratosis [Recovered/Resolved]
